FAERS Safety Report 17899903 (Version 1)
Quarter: 2020Q2

REPORT INFORMATION
  Report Type: Spontaneous
  Country: US (occurrence: US)
  Receive Date: 20200615
  Receipt Date: 20200615
  Transmission Date: 20200714
  Serious: No
  Sender: FDA-Public Use
  Company Number: None

PATIENT
  Sex: Female

DRUGS (1)
  1. MYCOPHENOLATE @ 250MG ROXANE [Suspect]
     Active Substance: MYCOPHENOLIC ACID
     Indication: RENAL TRANSPLANT
     Route: 048
     Dates: start: 202004

REACTIONS (4)
  - Haematocrit decreased [None]
  - Lymphocyte count decreased [None]
  - White blood cell count abnormal [None]
  - Haemoglobin decreased [None]
